FAERS Safety Report 23029034 (Version 1)
Quarter: 2023Q4

REPORT INFORMATION
  Report Type: Spontaneous
  Country: BE (occurrence: BE)
  Receive Date: 20231004
  Receipt Date: 20231004
  Transmission Date: 20240110
  Serious: Yes (Hospitalization, Other)
  Sender: FDA-Public Use
  Company Number: BE-ELI_LILLY_AND_COMPANY-BE202306010290

PATIENT
  Sex: Male

DRUGS (6)
  1. ZYPADHERA [Suspect]
     Active Substance: OLANZAPINE PAMOATE
     Indication: Schizoaffective disorder
     Dosage: UNK UNK, UNKNOWN
     Route: 065
  2. ZYPADHERA [Suspect]
     Active Substance: OLANZAPINE PAMOATE
     Indication: Schizoaffective disorder
     Dosage: UNK UNK, UNKNOWN
     Route: 065
  3. ZYPADHERA [Suspect]
     Active Substance: OLANZAPINE PAMOATE
     Indication: Schizoaffective disorder
     Dosage: UNK UNK, UNKNOWN
     Route: 065
  4. ZYPADHERA [Suspect]
     Active Substance: OLANZAPINE PAMOATE
     Dosage: 405 MG, UNKNOWN
     Route: 065
  5. ZYPADHERA [Suspect]
     Active Substance: OLANZAPINE PAMOATE
     Dosage: 405 MG, UNKNOWN
     Route: 065
  6. ZYPADHERA [Suspect]
     Active Substance: OLANZAPINE PAMOATE
     Dosage: 405 MG, UNKNOWN
     Route: 065

REACTIONS (3)
  - Pneumonia aspiration [Unknown]
  - Post-injection delirium sedation syndrome [Unknown]
  - Drug ineffective [Unknown]
